FAERS Safety Report 7462454-6 (Version None)
Quarter: 2011Q2

REPORT INFORMATION
  Report Type: 
  Country: None (occurrence: None)
  Receive Date: 20110506
  Receipt Date: 20110426
  Transmission Date: 20111010
  Serious: Yes (Hospitalization)
  Sender: FDA-Public Use
  Company Number: FR-BRISTOL-MYERS SQUIBB COMPANY-15704737

PATIENT
  Age: 89 Year
  Sex: Female

DRUGS (6)
  1. CANDESARTAN CILEXETIL [Suspect]
     Dosage: IN THE MORNING
  2. MEMANTINE HYDROCHLORIDE [Suspect]
     Dosage: TABS IN THE MRNG ALSO 20 MG IN THE MORNING.
  3. COUMADIN [Suspect]
     Indication: ARTHRALGIA
     Dosage: 2 MG SCORED TABLET 10MG FOR 2 DAYS UPTO 12MAR11 ALSO 4MG DAILY
     Route: 048
  4. ARIXTRA [Suspect]
     Indication: ATRIAL FIBRILLATION
     Dosage: 1 DF=5 MG/0.4 ML INJECTABLE SOLUTION  WITHDRAWN ON 12MAR11:2.5MG
     Route: 058
     Dates: start: 20101216, end: 20110312
  5. ACETAMINOPHEN [Suspect]
     Dosage: ALSO 3 PER DAY
  6. EQUANIL [Suspect]
     Indication: AGITATION

REACTIONS (4)
  - OVERDOSE [None]
  - HAEMATOMA [None]
  - OEDEMA PERIPHERAL [None]
  - CHOLESTASIS [None]
